FAERS Safety Report 21550267 (Version 5)
Quarter: 2023Q4

REPORT INFORMATION
  Report Type: Report from Study
  Country: JP (occurrence: JP)
  Receive Date: 20221103
  Receipt Date: 20231011
  Transmission Date: 20240110
  Serious: Yes (Other)
  Sender: FDA-Public Use
  Company Number: JP-ONO-2022JP024606

PATIENT
  Age: 84 Year
  Sex: Male
  Weight: 64 kg

DRUGS (12)
  1. BRAFTOVI [Suspect]
     Active Substance: ENCORAFENIB
     Indication: Colon cancer
     Dosage: 300 MG, EVERYDAY
     Route: 048
     Dates: start: 20220105, end: 20220525
  2. BRAFTOVI [Suspect]
     Active Substance: ENCORAFENIB
     Dosage: 225 MG, EVERYDAY
     Route: 048
     Dates: start: 20220601, end: 20220824
  3. BRAFTOVI [Suspect]
     Active Substance: ENCORAFENIB
     Dosage: 150 MG, EVERYDAY
     Route: 048
     Dates: start: 20220907, end: 20220914
  4. BRAFTOVI [Suspect]
     Active Substance: ENCORAFENIB
     Dosage: 150 MG, EVERYDAY
     Route: 048
     Dates: start: 20221012, end: 20221015
  5. MEKTOVI [Suspect]
     Active Substance: BINIMETINIB
     Indication: Colon cancer
     Dosage: 90 MG, EVERYDAY
     Route: 048
     Dates: start: 20220105, end: 20220525
  6. MEKTOVI [Suspect]
     Active Substance: BINIMETINIB
     Dosage: 60 MG, EVERYDAY
     Route: 048
     Dates: start: 20220601, end: 20220824
  7. MEKTOVI [Suspect]
     Active Substance: BINIMETINIB
     Dosage: 30 MG, EVERYDAY
     Route: 048
     Dates: start: 20220907, end: 20220914
  8. CETUXIMAB [Suspect]
     Active Substance: CETUXIMAB
     Indication: Colon cancer
     Dosage: 400 MG/M2
     Route: 065
     Dates: start: 20220105, end: 20220105
  9. CETUXIMAB [Suspect]
     Active Substance: CETUXIMAB
     Dosage: 250 MG/M2
     Route: 065
     Dates: start: 20220112, end: 20220525
  10. CETUXIMAB [Suspect]
     Active Substance: CETUXIMAB
     Dosage: 200 MG/M2
     Route: 065
     Dates: start: 20220601, end: 20220824
  11. CETUXIMAB [Suspect]
     Active Substance: CETUXIMAB
     Dosage: 150 MG/M2
     Route: 065
     Dates: start: 20220907, end: 20220914
  12. CETUXIMAB [Suspect]
     Active Substance: CETUXIMAB
     Dosage: 150 MG/M2
     Route: 065
     Dates: start: 20221012, end: 20221015

REACTIONS (5)
  - Renal impairment [Recovering/Resolving]
  - Decreased appetite [Recovering/Resolving]
  - Malaise [Recovering/Resolving]
  - Hepatic function abnormal [Recovering/Resolving]
  - Nausea [Recovering/Resolving]

NARRATIVE: CASE EVENT DATE: 20220525
